FAERS Safety Report 6380978-X (Version None)
Quarter: 2009Q3

REPORT INFORMATION
  Report Type: 
  Country: None (occurrence: None)
  Receive Date: 20090925
  Receipt Date: 20090925
  Transmission Date: 20100115
  Serious: Yes (Other)
  Sender: FDA-Public Use
  Company Number: None

PATIENT
  Age: 39 Year
  Sex: Female
  Weight: 108.8 kg

DRUGS (4)
  1. DEPAKOTE [Suspect]
     Indication: ANXIETY
     Dosage: 1000MG AT BEDTIME PO
     Route: 048
     Dates: start: 20090917, end: 20090922
  2. DEPAKOTE [Suspect]
     Indication: DEPRESSION
     Dosage: 1000MG AT BEDTIME PO
     Route: 048
     Dates: start: 20090917, end: 20090922
  3. DEPAKOTE [Suspect]
     Indication: POST-TRAUMATIC STRESS DISORDER
     Dosage: 1000MG AT BEDTIME PO
     Route: 048
     Dates: start: 20090917, end: 20090922
  4. SEROQUEL [Suspect]
     Dosage: 200MG AT BEDTIME PO
     Route: 048
     Dates: start: 20090917, end: 20090922

REACTIONS (7)
  - AFFECT LABILITY [None]
  - DEPRESSED LEVEL OF CONSCIOUSNESS [None]
  - INAPPROPRIATE SCHEDULE OF DRUG ADMINISTRATION [None]
  - PNEUMONIA [None]
  - PYREXIA [None]
  - SOMNOLENCE [None]
  - TREATMENT NONCOMPLIANCE [None]
